FAERS Safety Report 4943407-6 (Version None)
Quarter: 2006Q1

REPORT INFORMATION
  Report Type: 
  Country: None (occurrence: None)
  Receive Date: 20060314
  Receipt Date: 20060209
  Transmission Date: 20060701
  Serious: Yes (Other)
  Sender: FDA-Public Use
  Company Number: US-AVENTIS-200611420US

PATIENT
  Sex: Female
  Weight: 79.55 kg

DRUGS (4)
  1. FEXOFENADINE HCL [Suspect]
     Indication: HYPERSENSITIVITY
     Dates: start: 20060206, end: 20060207
  2. LORAZEPAM [Concomitant]
     Dosage: DOSE: UNKNOWN
  3. DIOVAN [Concomitant]
     Dosage: DOSE: UNKNOWN
  4. NEURONTIN [Concomitant]
     Dosage: DOSE: UNKNOWN

REACTIONS (3)
  - FEELING ABNORMAL [None]
  - HALLUCINATION [None]
  - HEADACHE [None]
